FAERS Safety Report 4976112-0 (Version None)
Quarter: 2006Q2

REPORT INFORMATION
  Report Type: 
  Country: None (occurrence: None)
  Receive Date: 20060411
  Receipt Date: 20060327
  Transmission Date: 20061013
  Serious: Yes (Hospitalization)
  Sender: FDA-Public Use
  Company Number: 2006S1001564

PATIENT
  Age: 82 Year
  Sex: Female
  Weight: 55.7924 kg

DRUGS (6)
  1. FENTANYL TRANSERMAL SYSTEM (50 UG/HR) [Suspect]
     Indication: OSTEOARTHRITIS
     Dosage: 50 UG/HR;Q3D;TRANS
     Route: 062
     Dates: start: 20051102
  2. FENTANYL TRANSERMAL SYSTEM (50 UG/HR) [Suspect]
     Indication: PAIN
     Dosage: 50 UG/HR;Q3D;TRANS
     Route: 062
     Dates: start: 20051102
  3. FENTANYL TRANSERMAL SYSTEM (50 UG/HR) [Suspect]
     Indication: PROCEDURAL PAIN
     Dosage: 50 UG/HR;Q3D;TRANS
     Route: 062
     Dates: start: 20051102
  4. ATENOLOL [Concomitant]
  5. PARACETAMOL/HYDROCODONE [Concomitant]
  6. BITARTRATE [Concomitant]

REACTIONS (6)
  - BLOOD PRESSURE INCREASED [None]
  - GRAND MAL CONVULSION [None]
  - INADEQUATE ANALGESIA [None]
  - MUSCLE TWITCHING [None]
  - PHARMACEUTICAL PRODUCT COMPLAINT [None]
  - SOCIAL AVOIDANT BEHAVIOUR [None]
